FAERS Safety Report 12867234 (Version 1)
Quarter: 2016Q4

REPORT INFORMATION
  Report Type: Spontaneous
  Country: US (occurrence: US)
  Receive Date: 20161020
  Receipt Date: 20161020
  Transmission Date: 20170207
  Serious: No
  Sender: FDA-Public Use
  Company Number: US-JAZZ-2016-US-014460

PATIENT
  Sex: Female

DRUGS (67)
  1. ASCORBIC ACID. [Concomitant]
     Active Substance: ASCORBIC ACID
  2. CROMOLYN SODIUM. [Concomitant]
     Active Substance: CROMOLYN SODIUM
  3. FLAXSEED [Concomitant]
     Active Substance: FLAX SEED
  4. VITAMIN D3 [Concomitant]
     Active Substance: CHOLECALCIFEROL
  5. YUCCA ROOT [Concomitant]
  6. ALLERGAN [Concomitant]
     Active Substance: PAPAIN
  7. GUAIFENESIN. [Concomitant]
     Active Substance: GUAIFENESIN
  8. MAGNESIUM GLUCONATE [Concomitant]
     Active Substance: MAGNESIUM GLUCONATE
  9. NALTREXONE HCL [Concomitant]
     Active Substance: NALTREXONE HYDROCHLORIDE
  10. SALT [Concomitant]
     Active Substance: SODIUM CHLORIDE
  11. SUMATRIPTAN SUCCINATE. [Concomitant]
     Active Substance: SUMATRIPTAN SUCCINATE
  12. VITAMIN B12 [Concomitant]
     Active Substance: CYANOCOBALAMIN
  13. DILTIAZEM. [Concomitant]
     Active Substance: DILTIAZEM
  14. PHENYLALANINE, DL- [Concomitant]
     Active Substance: PHENYLALANINE, DL-
  15. XYREM [Suspect]
     Active Substance: SODIUM OXYBATE
     Indication: NARCOLEPSY
     Dosage: 2.25 G, BID
     Route: 048
     Dates: start: 201007, end: 201008
  16. OLIVE LEAF [Concomitant]
  17. CHLORZOXAZONE. [Concomitant]
     Active Substance: CHLORZOXAZONE
  18. EPIPEN JR [Concomitant]
     Active Substance: EPINEPHRINE
  19. BIOTIN [Concomitant]
     Active Substance: BIOTIN
  20. CALCIUM CARBONATE. [Concomitant]
     Active Substance: CALCIUM CARBONATE
  21. RHODIOLA [Concomitant]
     Active Substance: HERBALS
  22. SLIPPERY ELM [Concomitant]
     Active Substance: ELM
  23. LORATADINE. [Concomitant]
     Active Substance: LORATADINE
  24. LYRICA [Concomitant]
     Active Substance: PREGABALIN
  25. ACIDOPHILIS [Concomitant]
     Active Substance: LACTOBACILLUS ACIDOPHILUS
  26. GLUCOSAMINE SULFAT [Concomitant]
  27. MIGRANAL [Concomitant]
     Active Substance: DIHYDROERGOTAMINE MESYLATE
  28. KETOCONAZOLE. [Concomitant]
     Active Substance: KETOCONAZOLE
  29. AZITHROMYCIN ANHYDROUS. [Concomitant]
     Active Substance: AZITHROMYCIN ANHYDROUS
  30. MINOCYCLINE [Concomitant]
     Active Substance: MINOCYCLINE\MINOCYCLINE HYDROCHLORIDE
  31. NALTREXONE [Concomitant]
     Active Substance: NALTREXONE
  32. THEANINE [Concomitant]
     Active Substance: THEANINE
  33. NADOLOL. [Concomitant]
     Active Substance: NADOLOL
  34. GLUTATHIONE [Concomitant]
     Active Substance: GLUTATHIONE
  35. L-METHIONINE [Concomitant]
  36. PROGESTERONE. [Concomitant]
     Active Substance: PROGESTERONE
  37. QUERCETIN DIHYDRATE [Concomitant]
  38. TAURINE [Concomitant]
     Active Substance: TAURINE
  39. AMITRIPTYLINE HCL [Concomitant]
     Active Substance: AMITRIPTYLINE
  40. TURMERIC [Concomitant]
     Active Substance: TURMERIC
  41. XYREM [Suspect]
     Active Substance: SODIUM OXYBATE
     Indication: CATAPLEXY
     Dosage: DOSE ADJUSTMENTS
     Route: 048
     Dates: start: 201008, end: 201105
  42. XYREM [Suspect]
     Active Substance: SODIUM OXYBATE
     Dosage: 3.5 G, BID
     Route: 048
     Dates: start: 201105
  43. DIGESTIVE ENZYMES [Concomitant]
     Active Substance: UNSPECIFIED INGREDIENT
  44. CIMETIDINE [Concomitant]
     Active Substance: CIMETIDINE
  45. CURCUMIN [Concomitant]
     Active Substance: CURCUMIN
  46. MAGNEBIND [Concomitant]
  47. CETIRIZINE HCL [Concomitant]
     Active Substance: CETIRIZINE HYDROCHLORIDE
  48. DEXAMETHASONE. [Concomitant]
     Active Substance: DEXAMETHASONE
  49. FEXOFENADINE HCL [Concomitant]
     Active Substance: FEXOFENADINE HYDROCHLORIDE
  50. FLONASE [Concomitant]
     Active Substance: FLUTICASONE PROPIONATE
  51. MILK THISTLE [Concomitant]
     Active Substance: MILK THISTLE
  52. MOLYBDENUM [Concomitant]
     Active Substance: MOLYBDENUM
  53. VERAPAMIL [Concomitant]
     Active Substance: VERAPAMIL HYDROCHLORIDE
  54. DIHYDROERGOTAMINE [Concomitant]
     Active Substance: DIHYDROERGOTAMINE
  55. L LYSINE [Concomitant]
  56. ONDANSETRON [Concomitant]
     Active Substance: ONDANSETRON
  57. VIVELLE [Concomitant]
     Active Substance: ESTRADIOL
  58. 5 HTP [Concomitant]
  59. PROBIOTIC [Concomitant]
     Active Substance: PROBIOTICS NOS
  60. VITAMIN B6 [Concomitant]
     Active Substance: PYRIDOXINE HYDROCHLORIDE
  61. FISH OIL [Concomitant]
     Active Substance: FISH OIL
  62. HYDROCORTISONE. [Concomitant]
     Active Substance: HYDROCORTISONE
  63. GASTROCROM [Concomitant]
     Active Substance: CROMOLYN SODIUM
  64. BOSWELLIA SERRATA [Concomitant]
  65. ALPHA LIPOIC ACID [Concomitant]
     Active Substance: .ALPHA.-LIPOIC ACID
  66. ACAI [Concomitant]
  67. METHYLCOBALAMIN. [Concomitant]
     Active Substance: METHYLCOBALAMIN

REACTIONS (2)
  - Somnolence [Not Recovered/Not Resolved]
  - Migraine [Not Recovered/Not Resolved]
